FAERS Safety Report 23667556 (Version 1)
Quarter: 2024Q1

REPORT INFORMATION
  Report Type: Spontaneous
  Country: US (occurrence: US)
  Receive Date: 20240325
  Receipt Date: 20240325
  Transmission Date: 20240409
  Serious: Yes (Life-Threatening, Hospitalization)
  Sender: FDA-Public Use
  Company Number: US-TEVA-VS-3173636

PATIENT
  Age: 53 Year
  Sex: Male

DRUGS (2)
  1. CARVEDILOL [Suspect]
     Active Substance: CARVEDILOL
     Indication: Intentional overdose
     Route: 065
  2. NIFEDIPINE [Suspect]
     Active Substance: NIFEDIPINE
     Indication: Intentional overdose
     Route: 065

REACTIONS (8)
  - Pulse pressure increased [Recovering/Resolving]
  - Generalised oedema [Recovering/Resolving]
  - Pulmonary oedema [Recovering/Resolving]
  - Hypervolaemia [Recovering/Resolving]
  - Shock [Recovering/Resolving]
  - Respiratory acidosis [Recovering/Resolving]
  - Acute respiratory distress syndrome [Recovered/Resolved]
  - Intentional overdose [Recovering/Resolving]
